FAERS Safety Report 9296775 (Version 3)
Quarter: 2013Q3

REPORT INFORMATION
  Report Type: Report from Study
  Country: FI (occurrence: FI)
  Receive Date: 20130517
  Receipt Date: 20130722
  Transmission Date: 20140515
  Serious: Yes (Hospitalization)
  Sender: FDA-Public Use
  Company Number: FI-ELI_LILLY_AND_COMPANY-FI201305001643

PATIENT
  Age: 68 Year
  Sex: Male

DRUGS (10)
  1. TERIPARATIDE [Suspect]
     Indication: OSTEOPOROSIS
     Dosage: 20 UG, QD
     Route: 065
     Dates: start: 20120927
  2. SEROQUEL [Suspect]
     Indication: HALLUCINATION
     Dosage: 400 MG, QD
     Route: 065
     Dates: start: 20130201
  3. SEROQUEL [Suspect]
     Dosage: 200 MG, QD
     Route: 065
     Dates: start: 20130330
  4. DEPRAKINE /00228501/ [Suspect]
     Indication: EPILEPSY
     Dosage: 600 MG, BID
     Route: 065
  5. LEVOZIN [Concomitant]
     Dosage: 50 MG, QD
     Route: 065
  6. KALCIPOS-D [Concomitant]
     Dosage: 500 MG, BID
     Route: 065
  7. TAMSUMIN [Concomitant]
     Dosage: 1 DF, QD
     Route: 065
  8. LEVOLAC [Concomitant]
     Indication: CONSTIPATION
     Dosage: UNK UNK, UNKNOWN
     Route: 065
  9. ABILIFY [Concomitant]
     Dosage: 15 MG, QD
     Route: 065
  10. OLANZAPINE [Concomitant]
     Dosage: 10 MG, BID
     Route: 065

REACTIONS (5)
  - Hallucination [Recovering/Resolving]
  - General physical health deterioration [Recovering/Resolving]
  - Muscular weakness [Recovering/Resolving]
  - Prostatic disorder [Recovering/Resolving]
  - Urinary retention [Unknown]
